FAERS Safety Report 10053258 (Version 1)
Quarter: 2014Q2

REPORT INFORMATION
  Report Type: Spontaneous
  Country: AU (occurrence: AU)
  Receive Date: 20140402
  Receipt Date: 20140402
  Transmission Date: 20141212
  Serious: Yes (Hospitalization)
  Sender: FDA-Public Use
  Company Number: AU-TAKEDA-2014TJP004274

PATIENT
  Age: 45 Year
  Sex: Female

DRUGS (3)
  1. NESINA [Suspect]
     Indication: PRODUCT USED FOR UNKNOWN INDICATION
     Dosage: 25 MG, QD
     Route: 048
  2. DIABEX XR [Concomitant]
     Indication: DIABETES MELLITUS
     Dosage: 1000 MG, QD
     Route: 048
  3. LANTUS [Concomitant]
     Dosage: UNK
     Route: 050

REACTIONS (2)
  - Vomiting [Unknown]
  - Abdominal pain upper [Unknown]
